FAERS Safety Report 5927305-7 (Version None)
Quarter: 2008Q4

REPORT INFORMATION
  Report Type: 
  Country: None (occurrence: None)
  Receive Date: 20081017
  Receipt Date: 20080910
  Transmission Date: 20090506
  Serious: Yes (Other)
  Sender: FDA-Public Use
  Company Number: WAES 0809USA01838

PATIENT
  Age: 31 Year
  Sex: Female

DRUGS (3)
  1. ALDOMET [Suspect]
     Indication: HYPERTENSION
     Dosage: 1500 MG/DAILY, PO, 375 MG/DAILY, PO
     Route: 048
  2. [THERAPY UNSPECIFIED] [Concomitant]
  3. HORMONES (UNSPECIFIED) [Concomitant]

REACTIONS (11)
  - BLOOD PRESSURE INADEQUATELY CONTROLLED [None]
  - CAESAREAN SECTION [None]
  - CONDITION AGGRAVATED [None]
  - DRUG EXPOSURE DURING PREGNANCY [None]
  - DRUG INEFFECTIVE [None]
  - FOETAL DISTRESS SYNDROME [None]
  - HYPERTENSIVE NEPHROPATHY [None]
  - IGA NEPHROPATHY [None]
  - PRE-ECLAMPSIA [None]
  - PREMATURE LABOUR [None]
  - RENAL IMPAIRMENT [None]
